FAERS Safety Report 7040364-6 (Version None)
Quarter: 2010Q4

REPORT INFORMATION
  Report Type: 
  Country: None (occurrence: None)
  Receive Date: 20101008
  Receipt Date: 20101008
  Transmission Date: 20110411
  Serious: Yes (Hospitalization)
  Sender: FDA-Public Use
  Company Number: None

PATIENT
  Sex: Female
  Weight: 79.8 kg

DRUGS (2)
  1. CISPLATIN [Suspect]
     Dosage: 50 MG
     Dates: end: 20100914
  2. TAXOL [Suspect]
     Dosage: 95 MG

REACTIONS (2)
  - GASTROINTESTINAL MOTILITY DISORDER [None]
  - URINARY TRACT INFECTION [None]
